FAERS Safety Report 8307910-3 (Version None)
Quarter: 2012Q2

REPORT INFORMATION
  Report Type: 
  Country: None (occurrence: None)
  Receive Date: 20120424
  Receipt Date: 20120420
  Transmission Date: 20120825
  Serious: No
  Sender: FDA-Public Use
  Company Number: US-PFIZER INC-2012098503

PATIENT
  Sex: Female

DRUGS (1)
  1. LYRICA [Suspect]
     Indication: POSTOPERATIVE CARE
     Dosage: 50 MG, 1X/DAY
     Route: 048
     Dates: start: 20120419

REACTIONS (2)
  - SOMNOLENCE [None]
  - FEELING ABNORMAL [None]
